FAERS Safety Report 17407235 (Version 1)
Quarter: 2020Q1

REPORT INFORMATION
  Report Type: Spontaneous
  Country: US (occurrence: US)
  Receive Date: 20200211
  Receipt Date: 20200211
  Transmission Date: 20200409
  Serious: Yes (Hospitalization)
  Sender: FDA-Public Use
  Company Number: None

PATIENT
  Sex: Female

DRUGS (18)
  1. DALFAMPRIDINE. [Suspect]
     Active Substance: DALFAMPRIDINE
     Indication: MULTIPLE SCLEROSIS
     Route: 048
     Dates: start: 20190513
  2. NORTRIPTLIN [Concomitant]
  3. BACLOFEN. [Concomitant]
     Active Substance: BACLOFEN
  4. DONEPEZIL. [Concomitant]
     Active Substance: DONEPEZIL
  5. ESTRADIOL. [Concomitant]
     Active Substance: ESTRADIOL
  6. HDROCO/APAP [Concomitant]
  7. GLATIRAMER [Suspect]
     Active Substance: GLATIRAMER
     Indication: MULTIPLE SCLEROSIS
     Dosage: ?          OTHER FREQUENCY:3 DAYS A WEEK;?
     Route: 058
     Dates: start: 20191122
  8. CALCIPOTRIEN [Concomitant]
  9. TRAZODONE [Concomitant]
     Active Substance: TRAZODONE HYDROCHLORIDE
  10. VITAMIN B6 [Concomitant]
     Active Substance: PYRIDOXINE HYDROCHLORIDE
  11. AMADTADINE [Concomitant]
  12. GABAPENTIN. [Concomitant]
     Active Substance: GABAPENTIN
  13. METRONIDAZOL [Concomitant]
     Active Substance: METRONIDAZOLE
  14. ONDANSETRON [Concomitant]
     Active Substance: ONDANSETRON
  15. VENLAFAXINE [Concomitant]
     Active Substance: VENLAFAXINE HYDROCHLORIDE
  16. AMOX/K CLAV TAB [Concomitant]
  17. VITAMIN B12 [Concomitant]
     Active Substance: CYANOCOBALAMIN
  18. VITAMIN D3 [Concomitant]
     Active Substance: CHOLECALCIFEROL

REACTIONS (7)
  - Depression [None]
  - Hypotension [None]
  - Sinusitis [None]
  - Tremor [None]
  - Colitis [None]
  - Fatigue [None]
  - Palpitations [None]
